FAERS Safety Report 5333286-X (Version None)
Quarter: 2007Q2

REPORT INFORMATION
  Report Type: 
  Country: None (occurrence: None)
  Receive Date: 20070524
  Receipt Date: 20070515
  Transmission Date: 20071010
  Serious: Yes (Hospitalization)
  Sender: FDA-Public Use
  Company Number: FR-AMGEN-US225205

PATIENT
  Age: 56 Year
  Sex: Female

DRUGS (2)
  1. ENBREL [Suspect]
     Indication: RHEUMATOID ARTHRITIS
     Dosage: 50 MG TOTAL WEEKLY
     Route: 058
     Dates: start: 20061115, end: 20070312
  2. ARAVA [Suspect]
     Indication: RHEUMATOID ARTHRITIS
     Route: 048
     Dates: start: 20061215, end: 20070312

REACTIONS (5)
  - ARTHRITIS [None]
  - CONDITION AGGRAVATED [None]
  - OEDEMA [None]
  - RHEUMATOID ARTHRITIS [None]
  - RHEUMATOID NODULE [None]
